FAERS Safety Report 4733690-4 (Version None)
Quarter: 2005Q3

REPORT INFORMATION
  Report Type: 
  Country: None (occurrence: None)
  Receive Date: 20050729
  Receipt Date: 20050720
  Transmission Date: 20060218
  Serious: Yes (Death)
  Sender: FDA-Public Use
  Company Number: MAG-2005-0000379

PATIENT
  Age: 79 Year
  Sex: Male

DRUGS (25)
  1. OXYCODONE HCL [Suspect]
     Indication: CANCER PAIN
     Dosage: SEE IMAGE
     Route: 048
     Dates: start: 20050210, end: 20050215
  2. OXYCODONE HCL [Suspect]
     Indication: CANCER PAIN
     Dosage: SEE IMAGE
     Route: 048
     Dates: start: 20050210, end: 20050621
  3. OXYCODONE HCL [Suspect]
     Indication: CANCER PAIN
     Dosage: SEE IMAGE
     Route: 048
     Dates: start: 20050621, end: 20050705
  4. OXYCODONE HCL [Suspect]
     Indication: CANCER PAIN
     Dosage: 5 MG, QD PRN, ORAL
     Route: 048
     Dates: start: 20050210, end: 20050214
  5. OXYCODONE HCL [Suspect]
     Indication: CANCER PAIN
     Dosage: 5 MG, QD PRN, ORAL
     Route: 048
     Dates: start: 20050210, end: 20050308
  6. OXYCODONE HCL [Suspect]
     Indication: CANCER PAIN
     Dosage: 5 MG, QD PRN, ORAL
     Route: 048
     Dates: start: 20050210, end: 20050621
  7. OXYCODONE HCL [Suspect]
     Indication: CANCER PAIN
     Dosage: 5 MG, QD PRN, ORAL
     Route: 048
     Dates: start: 20050308, end: 20050705
  8. OXYCODONE HCL [Suspect]
     Indication: CANCER PAIN
     Dosage: 5 MG, QD PRN, ORAL
     Route: 048
     Dates: start: 20050621, end: 20050705
  9. PURSENNID (SENNA LEAF) [Suspect]
     Indication: CONSTIPATION
     Dosage: 180 MG, DAILY, ORAL
     Route: 048
     Dates: start: 20050210, end: 20050705
  10. LOXONIN (LOXOPROFEN SODIUM) [Suspect]
     Indication: CANCER PAIN
     Dosage: 180 MG, DAILY, ORAL
     Route: 048
     Dates: start: 20050210, end: 20050705
  11. HALOPERIDOL [Suspect]
     Indication: NAUSEA
     Dosage: 0.75 MG, DAILY, ORAL
     Route: 048
     Dates: start: 20050210, end: 20050705
  12. ASPIRIN [Suspect]
     Indication: PROPHYLAXIS
     Dosage: 100 MG, DAILY, ORAL
     Route: 048
     Dates: start: 20050218, end: 20050705
  13. BLOPRESS (CANDESARTAN CILEXETIL) [Suspect]
     Indication: HYPERTENSION
     Dosage: 8 MG, DAILY, ORAL
     Route: 048
     Dates: start: 20050210, end: 20050705
  14. ALLOPURINOL [Suspect]
     Indication: HYPERURICAEMIA
     Dosage: 100 MG, DAILY, ORAL
     Route: 048
     Dates: start: 20050210, end: 20050705
  15. DISOPYRAMIDE [Suspect]
     Indication: ARRHYTHMIA
     Dosage: 300 MG, DAILY, ORAL
     Route: 048
     Dates: start: 20050210, end: 20050705
  16. TOFRANIL [Suspect]
     Indication: DEPRESSION
     Dosage: 10 MG, DAILY, ORAL
     Route: 048
     Dates: start: 20050308, end: 20050705
  17. LANSOPRAZOLE [Suspect]
     Indication: PROPHYLAXIS
     Dosage: 15 MG, DAILY, ORAL
     Route: 048
     Dates: start: 20050308, end: 20050705
  18. MAGNESIUM OXIDE (MAGNESIUM OXIDE) [Concomitant]
  19. VITAMEDINE CAPSULE (BENFOTIAMINE, CYANOCOBALAMIN, PYRIDOXINE HYDROCHLO [Concomitant]
  20. FENTANYL [Concomitant]
  21. LEVOFLOXACIN [Concomitant]
  22. SOLDEM 3A (SODIUM LACTATE, POTASSIUM CHLORIDE, SODIUM CHLORIDE, CARBOH [Concomitant]
  23. VITAMEDIN INTRAVENOUS (CYANOCOBALAMIN, THIAMINE DISULFIDE, PYRIDOXINE [Concomitant]
  24. GLUCOSE (GLUCOSE) [Concomitant]
  25. PHYSIO 35 [Concomitant]

REACTIONS (2)
  - HEPATIC ATROPHY [None]
  - HEPATIC FAILURE [None]
